FAERS Safety Report 13693391 (Version 3)
Quarter: 2018Q1

REPORT INFORMATION
  Report Type: Spontaneous
  Country: US (occurrence: US)
  Receive Date: 20170627
  Receipt Date: 20180115
  Transmission Date: 20180508
  Serious: Yes (Congenital Anomaly, Other)
  Sender: FDA-Public Use
  Company Number: US-AMGEN-USASP2017094606

PATIENT
  Sex: Male
  Weight: 2.29 kg

DRUGS (5)
  1. ENBREL [Suspect]
     Active Substance: ETANERCEPT
     Indication: EXPOSURE DURING PREGNANCY
     Dosage: 50 MG, QWK
     Route: 064
     Dates: start: 2016, end: 201611
  2. SULINDAC. [Concomitant]
     Active Substance: SULINDAC
     Dosage: 200 MG, BID
     Route: 064
  3. SULFASALAZINE. [Concomitant]
     Active Substance: SULFASALAZINE
     Dosage: 1000 MG, QD
     Route: 064
  4. NATURE-THROID [Concomitant]
     Active Substance: THYROID, PORCINE
     Indication: EXPOSURE DURING PREGNANCY
     Dosage: 16.25 MG, QD
     Route: 064
  5. NEXIUM [Concomitant]
     Active Substance: ESOMEPRAZOLE MAGNESIUM
     Dosage: UNK UNK, QD
     Route: 048

REACTIONS (2)
  - Meconium aspiration syndrome [Unknown]
  - Pneumothorax [Unknown]
